FAERS Safety Report 10136975 (Version 1)
Quarter: 2014Q2

REPORT INFORMATION
  Report Type: Spontaneous
  Country: US (occurrence: None)
  Receive Date: 20140428
  Receipt Date: 20140428
  Transmission Date: 20141212
  Serious: Yes (Life-Threatening, Hospitalization)
  Sender: FDA-Public Use
  Company Number: None

PATIENT
  Age: 54 Year
  Sex: Male
  Weight: 81.65 kg

DRUGS (1)
  1. XARELTO [Suspect]
     Indication: THROMBOSIS PROPHYLAXIS
     Dosage: 1 PILL A DAY, ONCE DAILY, TAKEN BY MOUTH
     Route: 048
     Dates: start: 20140420, end: 20140421

REACTIONS (3)
  - Epistaxis [None]
  - International normalised ratio increased [None]
  - Gastric haemorrhage [None]
